FAERS Safety Report 21558654 (Version 4)
Quarter: 2022Q4

REPORT INFORMATION
  Report Type: Report from Study
  Country: US (occurrence: US)
  Receive Date: 20221107
  Receipt Date: 20221223
  Transmission Date: 20230113
  Serious: Yes (Life-Threatening, Hospitalization, Other)
  Sender: FDA-Public Use
  Company Number: US-002147023-NVSC2022US246282

PATIENT
  Sex: Male

DRUGS (2)
  1. ENTRESTO [Suspect]
     Active Substance: SACUBITRIL\VALSARTAN
     Indication: Cardiac failure
     Dosage: UNK
     Route: 048
     Dates: start: 20220915
  2. ENTRESTO [Suspect]
     Active Substance: SACUBITRIL\VALSARTAN
     Dosage: 0.5 DOSAGE FORM, BID
     Route: 048

REACTIONS (13)
  - Cardiac arrest [Recovered/Resolved with Sequelae]
  - Arrhythmia [Unknown]
  - Sternal fracture [Unknown]
  - Gout [Unknown]
  - Rib fracture [Unknown]
  - Pain [Not Recovered/Not Resolved]
  - Cough [Unknown]
  - Blood test abnormal [Unknown]
  - Sneezing [Unknown]
  - Device malfunction [Unknown]
  - Cardiomegaly [Unknown]
  - Decreased appetite [Unknown]
  - Wrong technique in product usage process [Unknown]

NARRATIVE: CASE EVENT DATE: 20220101
